FAERS Safety Report 15342741 (Version 2)
Quarter: 2018Q4

REPORT INFORMATION
  Report Type: Report from Study
  Country: GB (occurrence: GB)
  Receive Date: 20180903
  Receipt Date: 20181202
  Transmission Date: 20190204
  Serious: Yes (Hospitalization, Other)
  Sender: FDA-Public Use
  Company Number: GB-BRISTOL-MYERS SQUIBB COMPANY-BMS-2016-103685

PATIENT
  Age: 50 Year
  Sex: Female

DRUGS (1)
  1. ABATACEPT [Suspect]
     Active Substance: ABATACEPT
     Indication: RHEUMATOID ARTHRITIS
     Dosage: 125 MG, QWK
     Route: 058
     Dates: start: 20131126

REACTIONS (7)
  - Pain [Unknown]
  - Malaise [Unknown]
  - Biliary colic [Unknown]
  - Cholelithiasis [Unknown]
  - Hospitalisation [Unknown]
  - Gallbladder disorder [Unknown]
  - Pharyngitis [Unknown]

NARRATIVE: CASE EVENT DATE: 20171213
